FAERS Safety Report 8591408 (Version 3)
Quarter: 2012Q4

REPORT INFORMATION
  Report Type: 
  Country: NL (occurrence: NL)
  Receive Date: 20120601
  Receipt Date: 20120912
  Transmission Date: 20130627
  Serious: Yes (Death)
  Sender: FDA-Public Use
  Company Number: NL-ACTELION-A-CH2012-66434

PATIENT
  Age: 59 Year
  Sex: Female
  Weight: 78 kg

DRUGS (11)
  1. TRACLEER [Suspect]
     Indication: PULMONARY ARTERIAL HYPERTENSION
     Dosage: 62.5 mg, bid
     Route: 048
     Dates: start: 20101005
  2. TRACLEER [Suspect]
     Dosage: 125 mg, bid
     Route: 048
     Dates: end: 20120522
  3. VENTAVIS [Suspect]
     Indication: PULMONARY ARTERIAL HYPERTENSION
     Dosage: UNK
     Route: 055
     Dates: start: 201204, end: 20120520
  4. BUMETANIDE [Concomitant]
  5. PREDNISONE [Concomitant]
  6. SERETIDE [Concomitant]
  7. SPIRIVA [Concomitant]
  8. DILTIAZEM [Concomitant]
  9. ACENOCOUMAROL [Concomitant]
  10. THYRAX [Concomitant]
  11. CITALOPRAM [Concomitant]

REACTIONS (3)
  - Pulmonary arterial hypertension [Fatal]
  - Terminal state [Fatal]
  - Cardiac failure [Fatal]
